FAERS Safety Report 20748950 (Version 2)
Quarter: 2022Q2

REPORT INFORMATION
  Report Type: Spontaneous
  Country: US (occurrence: US)
  Receive Date: 20220426
  Receipt Date: 20220511
  Transmission Date: 20220720
  Serious: Yes (Other)
  Sender: FDA-Public Use
  Company Number: US-009507513-2204USA007010

PATIENT
  Sex: Male

DRUGS (1)
  1. BELSOMRA [Suspect]
     Active Substance: SUVOREXANT
     Indication: Sleep disorder
     Dosage: 10 MILLIGRAM, ONCE DAILY
     Route: 048
     Dates: start: 2015

REACTIONS (5)
  - Parkinson^s disease [Unknown]
  - Hypoacusis [Unknown]
  - Surgery [Unknown]
  - Exercise tolerance decreased [Unknown]
  - Therapeutic response unexpected [Unknown]
